FAERS Safety Report 23666530 (Version 1)
Quarter: 2024Q1

REPORT INFORMATION
  Report Type: Spontaneous
  Country: CN (occurrence: CN)
  Receive Date: 20240324
  Receipt Date: 20240324
  Transmission Date: 20240410
  Serious: Yes (Hospitalization, Other)
  Sender: FDA-Public Use
  Company Number: CN-91440300279544901A-J2024HPR000150

PATIENT
  Age: 75 Year
  Sex: Female
  Weight: 57 kg

DRUGS (2)
  1. ENOXAPARIN SODIUM [Suspect]
     Active Substance: ENOXAPARIN SODIUM
     Indication: Anticoagulant therapy
     Dosage: 6000UNIT,EVERY 12 HOURS
     Dates: start: 20240216, end: 20240218
  2. RIVAROXABAN [Suspect]
     Active Substance: RIVAROXABAN
     Indication: Anticoagulant therapy
     Dosage: 15MG,QD
     Dates: start: 20240219

REACTIONS (1)
  - Coagulopathy [Unknown]

NARRATIVE: CASE EVENT DATE: 20240310
